FAERS Safety Report 25902478 (Version 1)
Quarter: 2025Q4

REPORT INFORMATION
  Report Type: Spontaneous
  Country: US (occurrence: US)
  Receive Date: 20251009
  Receipt Date: 20251009
  Transmission Date: 20260117
  Serious: Yes (Death, Hospitalization, Other)
  Sender: PURDUE
  Company Number: US-PURDUE PHARMA-USA-2025-0321195

PATIENT
  Sex: Male

DRUGS (1)
  1. OXYCODONE HYDROCHLORIDE [Suspect]
     Active Substance: OXYCODONE HYDROCHLORIDE
     Indication: Pain
     Dosage: 30 MG TABLETS
     Route: 065

REACTIONS (17)
  - Post procedural complication [Fatal]
  - Road traffic accident [Unknown]
  - Myelopathy [Unknown]
  - Spinal cord injury cervical [Unknown]
  - Cervical spinal stenosis [Unknown]
  - Sickle cell anaemia with crisis [Unknown]
  - Injury [Unknown]
  - Loss of personal independence in daily activities [Unknown]
  - Ligament sprain [Unknown]
  - Condition aggravated [Unknown]
  - Spinal column injury [Unknown]
  - Limb injury [Unknown]
  - Joint injury [Unknown]
  - Head injury [Unknown]
  - General physical health deterioration [Unknown]
  - Joint range of motion decreased [Unknown]
  - Pain [Unknown]

NARRATIVE: CASE EVENT DATE: 20170424
